FAERS Safety Report 23732098 (Version 1)
Quarter: 2024Q2

REPORT INFORMATION
  Report Type: Spontaneous
  Country: US (occurrence: None)
  Receive Date: 20240410
  Receipt Date: 20240410
  Transmission Date: 20240716
  Serious: No
  Sender: FDA-Public Use
  Company Number: None

PATIENT
  Age: 45 Year
  Sex: Female
  Weight: 47.92 kg

DRUGS (24)
  1. REPATHA [Suspect]
     Active Substance: EVOLOCUMAB
     Indication: Low density lipoprotein increased
     Dosage: OTHER FREQUENCY : 2 WEEKS;?
     Route: 058
     Dates: start: 20240330, end: 20240331
  2. REPATHA [Suspect]
     Active Substance: EVOLOCUMAB
     Indication: Apolipoprotein B increased
  3. CLARITIN [Concomitant]
     Active Substance: LORATADINE
  4. ZYRTEC [Concomitant]
     Active Substance: CETIRIZINE HYDROCHLORIDE
  5. NASONEX [Concomitant]
     Active Substance: MOMETASONE FUROATE
  6. VITAMINS [Concomitant]
     Active Substance: VITAMINS
  7. VITAMIN D3 [Concomitant]
     Active Substance: CHOLECALCIFEROL
  8. FISH OIL [Concomitant]
     Active Substance: FISH OIL
  9. MAGNESIUM [Concomitant]
     Active Substance: MAGNESIUM
  10. ZINC [Concomitant]
     Active Substance: PYRITHIONE ZINC\ZINC\ZINC CHLORIDE
  11. LYSINE [Concomitant]
     Active Substance: LYSINE
  12. LEVOCARNITINE [Concomitant]
     Active Substance: LEVOCARNITINE
  13. Coenzyme Q 10 [Concomitant]
  14. Reservation [Concomitant]
  15. BERBERINE [Concomitant]
     Active Substance: BERBERINE
  16. GLUTATHIONE [Concomitant]
     Active Substance: GLUTATHIONE
  17. N-acetylene-L-cystine [Concomitant]
  18. PANTETHINE [Concomitant]
     Active Substance: PANTETHINE
  19. LYSINE [Concomitant]
     Active Substance: LYSINE
  20. ARGININE [Concomitant]
     Active Substance: ARGININE
  21. GLUTAMINE [Concomitant]
     Active Substance: GLUTAMINE
  22. HERBALS\WITHANIA SOMNIFERA ROOT [Concomitant]
     Active Substance: HERBALS\WITHANIA SOMNIFERA ROOT
  23. Mushroom and adaptogen blend [Concomitant]
  24. TIROSINT [Concomitant]
     Active Substance: LEVOTHYROXINE SODIUM

REACTIONS (5)
  - Generalised oedema [None]
  - Peripheral swelling [None]
  - Abdominal distension [None]
  - Weight increased [None]
  - Inflammation [None]

NARRATIVE: CASE EVENT DATE: 20240331
